FAERS Safety Report 9891326 (Version 1)
Quarter: 2014Q1

REPORT INFORMATION
  Report Type: Report from Study
  Country: US (occurrence: US)
  Receive Date: 20140212
  Receipt Date: 20140212
  Transmission Date: 20141002
  Serious: No
  Sender: FDA-Public Use
  Company Number: US-ABBVIE-13P-163-1171642-00

PATIENT
  Age: 33 Year
  Sex: Male
  Weight: 59.47 kg

DRUGS (3)
  1. NORVIR [Suspect]
     Indication: HIV INFECTION
     Route: 048
     Dates: start: 20130813, end: 20130918
  2. TRUVADA [Concomitant]
     Indication: HIV INFECTION
  3. ISENTRESS [Concomitant]
     Indication: HIV INFECTION

REACTIONS (2)
  - Ocular icterus [Recovered/Resolved]
  - Blood bilirubin increased [Unknown]
